FAERS Safety Report 23932469 (Version 1)
Quarter: 2024Q2

REPORT INFORMATION
  Report Type: Spontaneous
  Country: US (occurrence: None)
  Receive Date: 20240531
  Receipt Date: 20240531
  Transmission Date: 20240715
  Serious: Yes (Other)
  Sender: FDA-Public Use
  Company Number: None

PATIENT
  Age: 24 Year
  Sex: Male
  Weight: 69.75 kg

DRUGS (1)
  1. ZENATANE [Suspect]
     Active Substance: ISOTRETINOIN
     Indication: Acne
     Dosage: 1 CAPSULE TWICE A DAY ORAL?
     Route: 048

REACTIONS (4)
  - Seizure [None]
  - Paraesthesia [None]
  - Photophobia [None]
  - Hypoacusis [None]

NARRATIVE: CASE EVENT DATE: 20240516
